FAERS Safety Report 12732653 (Version 4)
Quarter: 2018Q4

REPORT INFORMATION
  Report Type: Spontaneous
  Country: ZA (occurrence: ZA)
  Receive Date: 20160912
  Receipt Date: 20181116
  Transmission Date: 20190204
  Serious: Yes (Other)
  Sender: FDA-Public Use
  Company Number: ALCN2016ZA006268

PATIENT

DRUGS (1)
  1. CILODEX [Suspect]
     Active Substance: CIPROFLOXACIN\DEXAMETHASONE
     Indication: EAR INFECTION
     Route: 065

REACTIONS (2)
  - Drug ineffective [Unknown]
  - Pseudomonas infection [Unknown]
